FAERS Safety Report 7474682-4 (Version None)
Quarter: 2011Q2

REPORT INFORMATION
  Report Type: 
  Country: None (occurrence: None)
  Receive Date: 20110505
  Receipt Date: 20110428
  Transmission Date: 20111010
  Serious: Yes (Hospitalization)
  Sender: FDA-Public Use
  Company Number: FRP11000233

PATIENT
  Age: 76 Year
  Sex: Male

DRUGS (1)
  1. ACTONEL [Suspect]
     Indication: OSTEOPOROSIS
     Dosage: 75 MG, 2 CD/MONTH, ORAL
     Route: 048
     Dates: start: 20110113, end: 20110114

REACTIONS (2)
  - DIZZINESS [None]
  - ATRIAL FIBRILLATION [None]
